FAERS Safety Report 17050192 (Version 6)
Quarter: 2020Q4

REPORT INFORMATION
  Report Type: Report from Study
  Country: CA (occurrence: CA)
  Receive Date: 20191119
  Receipt Date: 20201216
  Transmission Date: 20210113
  Serious: Yes (Hospitalization)
  Sender: FDA-Public Use
  Company Number: CA-JNJFOC-20191113107

PATIENT
  Age: 72 Year
  Sex: Male

DRUGS (2)
  1. REMICADE [Suspect]
     Active Substance: INFLIXIMAB
     Dosage: ON 29-OCT-2020, THE PATIENT RECEIVED 86TH INFUSION OF 1000 MG DOSE.
     Route: 042
  2. REMICADE [Suspect]
     Active Substance: INFLIXIMAB
     Indication: COLITIS ULCERATIVE
     Dosage: UNIT DOSE ALSO REPORTED AS 1000 MILLIGRAM
     Route: 042
     Dates: start: 20100908

REACTIONS (2)
  - Transurethral prostatectomy [Unknown]
  - Bladder cancer [Unknown]

NARRATIVE: CASE EVENT DATE: 20191001
